FAERS Safety Report 8809276 (Version 1)
Quarter: 2012Q4

REPORT INFORMATION
  Report Type: 
  Country: US (occurrence: US)
  Receive Date: 20120926
  Receipt Date: 20120926
  Transmission Date: 20130627
  Serious: No
  Sender: FDA-Public Use
  Company Number: US-BAYER-2012-098680

PATIENT
  Age: 25 Year
  Sex: Female
  Weight: 73 kg

DRUGS (1)
  1. BETASERON [Suspect]
     Indication: MULTIPLE SCLEROSIS
     Dosage: 0.25 mg (1mL), QOD
     Route: 058
     Dates: start: 20030101

REACTIONS (3)
  - Influenza like illness [Unknown]
  - Pain [Unknown]
  - Arthralgia [Unknown]
